FAERS Safety Report 19068224 (Version 1)
Quarter: 2021Q1

REPORT INFORMATION
  Report Type: Spontaneous
  Country: US (occurrence: US)
  Receive Date: 20210326
  Receipt Date: 20210326
  Transmission Date: 20210420
  Serious: Yes (Death)
  Sender: FDA-Public Use
  Company Number: None

PATIENT
  Age: 64 Year
  Sex: Male
  Weight: 79.83 kg

DRUGS (3)
  1. REMDESIVIR 100MG [Suspect]
     Active Substance: REMDESIVIR
     Indication: COVID-19
     Dosage: 100MG QD IVPB
     Route: 042
     Dates: start: 20210222, end: 20210226
  2. ACTEMRA [Suspect]
     Active Substance: TOCILIZUMAB
     Indication: COVID-19
     Dosage: 400MG X1 IVPB?
     Route: 042
     Dates: start: 20210224, end: 20210224
  3. REMDESIVIR 100MG [Suspect]
     Active Substance: REMDESIVIR
     Indication: COVID-19
     Dosage: 200MGX1  IVPB
     Route: 042
     Dates: start: 20210222, end: 20210226

REACTIONS (1)
  - Death [None]

NARRATIVE: CASE EVENT DATE: 20210312
